FAERS Safety Report 10662203 (Version 2)
Quarter: 2015Q1

REPORT INFORMATION
  Report Type: Spontaneous
  Country: FR (occurrence: FR)
  Receive Date: 20141218
  Receipt Date: 20150108
  Transmission Date: 20150720
  Serious: Yes (Hospitalization)
  Sender: FDA-Public Use
  Company Number: FR-RECKITT BENCKISER PHARMACEUTICAL, INC-RB-74216-2014

PATIENT
  Age: 48 Year
  Sex: Male

DRUGS (2)
  1. XANAX [Suspect]
     Active Substance: ALPRAZOLAM
     Indication: PRODUCT USED FOR UNKNOWN INDICATION
     Dosage: SEVERAL TABLETS FOR 2 DAYS
     Route: 048
     Dates: start: 20141002, end: 20141003
  2. SUBUTEX [Suspect]
     Active Substance: BUPRENORPHINE HYDROCHLORIDE
     Indication: PRODUCT USED FOR UNKNOWN INDICATION
     Dosage: 2 TABLETS, ONE IN ONE DAY FOR 2 DAYS
     Route: 048
     Dates: start: 20141002, end: 20141003

REACTIONS (6)
  - Cyanosis [Recovered/Resolved]
  - Intentional overdose [Recovered/Resolved]
  - Incorrect route of drug administration [Unknown]
  - Apnoea [Recovered/Resolved]
  - Pneumonia aspiration [Recovered/Resolved]
  - Drug abuse [Recovered/Resolved]

NARRATIVE: CASE EVENT DATE: 201410
